FAERS Safety Report 5212709-0 (Version None)
Quarter: 2006Q4

REPORT INFORMATION
  Report Type: 
  Country: None (occurrence: None)
  Receive Date: 20061115
  Receipt Date: 20060926
  Transmission Date: 20070319
  Serious: Yes (Hospitalization)
  Sender: FDA-Public Use
  Company Number: 200615756BWH

PATIENT
  Age: 81 Year
  Sex: Female

DRUGS (6)
  1. NEXAVAR [Suspect]
     Indication: RENAL CELL CARCINOMA STAGE UNSPECIFIED
     Dosage: 400 MG, BID, ORAL
     Route: 048
     Dates: start: 20060201
  2. LASIX [Concomitant]
  3. ALLOPURINOL SODIUM [Concomitant]
  4. LOPRESSOR [Concomitant]
  5. ASPIRIN [Concomitant]
  6. VITAMINS NOS [Concomitant]

REACTIONS (4)
  - ALOPECIA [None]
  - BLISTER [None]
  - PRURITUS [None]
  - SKIN REACTION [None]
